FAERS Safety Report 16637892 (Version 1)
Quarter: 2019Q3

REPORT INFORMATION
  Report Type: Spontaneous
  Country: US (occurrence: US)
  Receive Date: 20190726
  Receipt Date: 20190726
  Transmission Date: 20191004
  Serious: Yes (Other)
  Sender: FDA-Public Use
  Company Number: None

PATIENT
  Age: 62 Year
  Sex: Male

DRUGS (1)
  1. HUMALOG [Suspect]
     Active Substance: INSULIN LISPRO
     Indication: TYPE 1 DIABETES MELLITUS
     Route: 058

REACTIONS (6)
  - Peripheral swelling [None]
  - Headache [None]
  - Paraesthesia oral [None]
  - Eye irritation [None]
  - Dysphonia [None]
  - Eye pruritus [None]

NARRATIVE: CASE EVENT DATE: 20190716
